FAERS Safety Report 4950345-1 (Version None)
Quarter: 2006Q1

REPORT INFORMATION
  Report Type: 
  Country: None (occurrence: None)
  Receive Date: 20060322
  Receipt Date: 20060310
  Transmission Date: 20060701
  Serious: Yes (Hospitalization, Other)
  Sender: FDA-Public Use
  Company Number: FR-BRISTOL-MYERS SQUIBB COMPANY-13315874

PATIENT
  Age: 70 Year
  Sex: Male

DRUGS (1)
  1. VASTEN TABS [Suspect]
     Route: 048
     Dates: end: 20051015

REACTIONS (6)
  - ANOREXIA [None]
  - ASTHENIA [None]
  - EOSINOPHILIC FASCIITIS [None]
  - OEDEMA PERIPHERAL [None]
  - PAIN IN EXTREMITY [None]
  - WEIGHT DECREASED [None]
